FAERS Safety Report 13541349 (Version 2)
Quarter: 2017Q2

REPORT INFORMATION
  Report Type: Spontaneous
  Country: US (occurrence: US)
  Receive Date: 20170512
  Receipt Date: 20170606
  Transmission Date: 20170830
  Serious: No
  Sender: FDA-Public Use
  Company Number: US-SA-2016SA100062

PATIENT
  Age: 35 Year
  Sex: Female

DRUGS (6)
  1. APIDRA SOLOSTAR [Suspect]
     Active Substance: INSULIN GLULISINE
     Indication: TYPE 2 DIABETES MELLITUS
     Dosage: 45, 50, 60?UNITS
     Route: 065
     Dates: start: 2016
  2. SOLOSTAR [Concomitant]
     Active Substance: DEVICE
     Route: 065
     Dates: start: 2016
  3. SOLOSTAR [Concomitant]
     Active Substance: DEVICE
     Dosage: DOSE:45 UNIT(S)
     Route: 065
  4. LANTUS SOLOSTAR [Suspect]
     Active Substance: INSULIN GLARGINE
     Indication: TYPE 2 DIABETES MELLITUS
     Dosage: DOSE:45 UNIT(S)
     Route: 065
  5. LANTUS SOLOSTAR [Suspect]
     Active Substance: INSULIN GLARGINE
     Indication: TYPE 2 DIABETES MELLITUS
     Dosage: DOSE:50 UNIT(S)
     Route: 065
  6. SOLOSTAR [Concomitant]
     Active Substance: DEVICE
     Dosage: DOSE:50 UNIT(S)
     Route: 065

REACTIONS (2)
  - Product use issue [Unknown]
  - Memory impairment [Unknown]
